FAERS Safety Report 16672846 (Version 4)
Quarter: 2020Q1

REPORT INFORMATION
  Report Type: Spontaneous
  Country: JP (occurrence: JP)
  Receive Date: 20190806
  Receipt Date: 20200115
  Transmission Date: 20200409
  Serious: Yes (Death, Other)
  Sender: FDA-Public Use
  Company Number: JP-009507513-1907JPN003754J

PATIENT

DRUGS (1)
  1. KEYTRUDA [Suspect]
     Active Substance: PEMBROLIZUMAB
     Indication: NON-SMALL CELL LUNG CANCER
     Dosage: 200 MILLIGRAM, Q3W
     Route: 041

REACTIONS (17)
  - Rash [Unknown]
  - Encephalopathy [Unknown]
  - Diet refusal [Unknown]
  - Lipase increased [Unknown]
  - Pemphigoid [Unknown]
  - Anaemia [Unknown]
  - Bacterial infection [Fatal]
  - Pneumonitis [Fatal]
  - Hepatitis [Unknown]
  - Myositis [Unknown]
  - Amylase increased [Unknown]
  - Nausea [Unknown]
  - Constipation [Unknown]
  - Type 1 diabetes mellitus [Unknown]
  - Hypothyroidism [Unknown]
  - Fatigue [Unknown]
  - Diarrhoea [Unknown]
